FAERS Safety Report 7131030-7 (Version None)
Quarter: 2010Q4

REPORT INFORMATION
  Report Type: 
  Country: None (occurrence: None)
  Receive Date: 20101201
  Receipt Date: 20101125
  Transmission Date: 20110411
  Serious: Yes (Other)
  Sender: FDA-Public Use
  Company Number: B0686621A

PATIENT
  Sex: Male
  Weight: 58 kg

DRUGS (5)
  1. PAXIL [Suspect]
     Indication: AGITATION
     Dosage: 20MG PER DAY
     Route: 048
     Dates: start: 20101011, end: 20101011
  2. HALOPERIDOL [Suspect]
     Indication: DRUG WITHDRAWAL SYNDROME
     Dosage: 15MG PER DAY
     Route: 030
     Dates: start: 20101012, end: 20101016
  3. ROHYPNOL [Concomitant]
  4. HIRNAMIN [Concomitant]
     Dosage: 20MG PER DAY
     Route: 065
     Dates: start: 20101011
  5. SEROQUEL [Concomitant]
     Dosage: 175MG PER DAY
     Route: 048
     Dates: start: 20101012

REACTIONS (9)
  - AGITATION [None]
  - BLOOD CREATINE PHOSPHOKINASE INCREASED [None]
  - BLOOD CREATININE INCREASED [None]
  - MUSCLE RIGIDITY [None]
  - NEUROLEPTIC MALIGNANT SYNDROME [None]
  - RENAL FAILURE ACUTE [None]
  - RENAL IMPAIRMENT [None]
  - TREMOR [None]
  - WHITE BLOOD CELL COUNT INCREASED [None]
